FAERS Safety Report 6619421-1 (Version None)
Quarter: 2010Q1

REPORT INFORMATION
  Report Type: 
  Country: None (occurrence: None)
  Receive Date: 20100309
  Receipt Date: 20100226
  Transmission Date: 20100710
  Serious: Yes (Other)
  Sender: FDA-Public Use
  Company Number: US-RB-004212-10

PATIENT
  Sex: Male

DRUGS (1)
  1. MUCINEX [Suspect]
     Dosage: TOOK 14 MAXIMUM STRENGTH MUCINEX AS DIRECTED
     Route: 048

REACTIONS (1)
  - EPISTAXIS [None]
